FAERS Safety Report 23446304 (Version 1)
Quarter: 2024Q1

REPORT INFORMATION
  Report Type: Spontaneous
  Country: US (occurrence: None)
  Receive Date: 20240125
  Receipt Date: 20240125
  Transmission Date: 20240410
  Serious: Yes (Other)
  Sender: FDA-Public Use
  Company Number: None

PATIENT
  Age: 62 Year
  Sex: Female

DRUGS (15)
  1. AMBRISENTAN [Suspect]
     Active Substance: AMBRISENTAN
     Indication: Pulmonary arterial hypertension
     Dosage: 10MG QD ORAL
     Route: 048
     Dates: start: 20120430
  2. SILDENAFIL [Concomitant]
     Active Substance: SILDENAFIL
     Dates: start: 20120430
  3. SELEXIPAG [Concomitant]
     Active Substance: SELEXIPAG
  4. LORAZEPAM [Concomitant]
     Active Substance: LORAZEPAM
  5. BUPROPION [Concomitant]
     Active Substance: BUPROPION
  6. TRAZODONE [Concomitant]
  7. FUROSEMIDE [Concomitant]
     Active Substance: FUROSEMIDE
  8. COLCHICINE [Concomitant]
     Active Substance: COLCHICINE
  9. ONDANSETRON [Concomitant]
     Active Substance: ONDANSETRON
  10. POTASSIUM CHLORIDE [Concomitant]
     Active Substance: POTASSIUM CHLORIDE
  11. CYCLOBENZAPRINE [Concomitant]
  12. NARCAN [Concomitant]
     Active Substance: NALOXONE HYDROCHLORIDE
  13. PRUCALOPRIDE [Concomitant]
     Active Substance: PRUCALOPRIDE
  14. VITAMIN B COMPLEX [Concomitant]
     Active Substance: CYANOCOBALAMIN\DEXPANTHENOL\NIACINAMIDE\PYRIDOXINE HYDROCHLORIDE\RIBOFLAVIN 5^-PHOSPHATE SODIUM\THIA
  15. VITAMIN D3 [Concomitant]
     Active Substance: CHOLECALCIFEROL

REACTIONS (3)
  - Chest pain [None]
  - Neck pain [None]
  - Torticollis [None]

NARRATIVE: CASE EVENT DATE: 20240122
